FAERS Safety Report 24941154 (Version 1)
Quarter: 2025Q1

REPORT INFORMATION
  Report Type: Spontaneous
  Country: PL (occurrence: PL)
  Receive Date: 20250207
  Receipt Date: 20250207
  Transmission Date: 20250408
  Serious: Yes (Hospitalization)
  Sender: Haleon PLC
  Company Number: PL-HALEON-2195644

PATIENT
  Age: 31 Year
  Sex: Female

DRUGS (43)
  1. ACETAMINOPHEN [Interacting]
     Active Substance: ACETAMINOPHEN
     Indication: Oropharyngeal pain
     Route: 048
  2. ACETAMINOPHEN [Interacting]
     Active Substance: ACETAMINOPHEN
     Indication: Throat irritation
  3. BUPROPION HYDROCHLORIDE\NALTREXONE HYDROCHLORIDE [Suspect]
     Active Substance: BUPROPION HYDROCHLORIDE\NALTREXONE HYDROCHLORIDE
     Indication: Product used for unknown indication
  4. ZOLPIDEM [Suspect]
     Active Substance: ZOLPIDEM TARTRATE
     Indication: Product used for unknown indication
  5. AMLODIPINE [Suspect]
     Active Substance: AMLODIPINE BESYLATE
     Indication: Hypertension
  6. DICLOFENAC [Interacting]
     Active Substance: DICLOFENAC
     Indication: Product used for unknown indication
  7. AMOXICILLIN [Suspect]
     Active Substance: AMOXICILLIN
     Indication: Throat irritation
     Route: 048
  8. AMOXICILLIN [Suspect]
     Active Substance: AMOXICILLIN
     Indication: Oropharyngeal pain
  9. RAMIPRIL [Suspect]
     Active Substance: RAMIPRIL
     Indication: Hypertension
     Dosage: 10 MG/D
  10. SERTRALINE [Suspect]
     Active Substance: SERTRALINE HYDROCHLORIDE
     Indication: Insomnia
     Dosage: 100 MG/D IN THE MORNING
  11. SERTRALINE [Suspect]
     Active Substance: SERTRALINE HYDROCHLORIDE
     Indication: Depression
  12. SEMAGLUTIDE [Suspect]
     Active Substance: SEMAGLUTIDE
     Indication: Weight increased
  13. SEMAGLUTIDE [Suspect]
     Active Substance: SEMAGLUTIDE
     Indication: Mental disorder
  14. SEMAGLUTIDE [Suspect]
     Active Substance: SEMAGLUTIDE
     Indication: Insomnia
  15. SEMAGLUTIDE [Suspect]
     Active Substance: SEMAGLUTIDE
     Indication: Depression
  16. MIRTAZAPINE [Interacting]
     Active Substance: MIRTAZAPINE
     Indication: Insomnia
     Dosage: 30 MG AT NIGHT
  17. MIRTAZAPINE [Interacting]
     Active Substance: MIRTAZAPINE
     Indication: Insomnia
  18. MIRTAZAPINE [Interacting]
     Active Substance: MIRTAZAPINE
     Indication: Depression
  19. TIRZEPATIDE [Concomitant]
     Active Substance: TIRZEPATIDE
     Indication: Product used for unknown indication
  20. KETOPROFEN [Suspect]
     Active Substance: KETOPROFEN
     Indication: Oropharyngeal pain
     Route: 042
  21. AMOXICILLIN\CLAVULANATE POTASSIUM [Interacting]
     Active Substance: AMOXICILLIN\CLAVULANATE POTASSIUM
     Indication: Throat irritation
     Dosage: UNK
     Route: 048
  22. AMOXICILLIN\CLAVULANATE POTASSIUM [Interacting]
     Active Substance: AMOXICILLIN\CLAVULANATE POTASSIUM
     Indication: Dysphagia
  23. AMOXICILLIN\CLAVULANATE POTASSIUM [Interacting]
     Active Substance: AMOXICILLIN\CLAVULANATE POTASSIUM
     Indication: Oropharyngeal pain
  24. METHIMAZOLE [Suspect]
     Active Substance: METHIMAZOLE
     Indication: Oropharyngeal pain
  25. BUPROPION HYDROCHLORIDE\NALTREXONE HYDROCHLORIDE [Interacting]
     Active Substance: BUPROPION HYDROCHLORIDE\NALTREXONE HYDROCHLORIDE
     Indication: Mental disorder
     Route: 065
  26. BUPROPION HYDROCHLORIDE\NALTREXONE HYDROCHLORIDE [Interacting]
     Active Substance: BUPROPION HYDROCHLORIDE\NALTREXONE HYDROCHLORIDE
     Indication: Weight increased
  27. AMOXICILLIN\CLAVULANIC ACID [Suspect]
     Active Substance: AMOXICILLIN\CLAVULANIC ACID
     Indication: Oropharyngeal pain
  28. DICLOFENAC SODIUM\LIDOCAINE HYDROCHLORIDE [Interacting]
     Active Substance: DICLOFENAC SODIUM\LIDOCAINE HYDROCHLORIDE
     Indication: Oropharyngeal pain
  29. DICLOFENAC SODIUM\LIDOCAINE HYDROCHLORIDE [Interacting]
     Active Substance: DICLOFENAC SODIUM\LIDOCAINE HYDROCHLORIDE
     Indication: Dysphagia
  30. DICLOFENAC SODIUM\LIDOCAINE HYDROCHLORIDE [Interacting]
     Active Substance: DICLOFENAC SODIUM\LIDOCAINE HYDROCHLORIDE
     Indication: Throat irritation
  31. MAGNESIUM SULFATE [Concomitant]
     Active Substance: MAGNESIUM SULFATE
     Indication: Product used for unknown indication
     Route: 042
  32. MAGNESIUM SULFATE [Concomitant]
     Active Substance: MAGNESIUM SULFATE
  33. METAMIZOLE [Suspect]
     Active Substance: METAMIZOLE
     Indication: Oropharyngeal pain
     Route: 042
  34. METAMIZOLE [Suspect]
     Active Substance: METAMIZOLE
     Indication: Product used for unknown indication
  35. INDAPAMIDE [Concomitant]
     Active Substance: INDAPAMIDE
     Indication: Product used for unknown indication
     Route: 065
  36. AMBROXOL [Suspect]
     Active Substance: AMBROXOL
     Indication: Neuralgia
  37. AMBROXOL [Suspect]
     Active Substance: AMBROXOL
     Indication: Product used for unknown indication
  38. AMBROXOL [Suspect]
     Active Substance: AMBROXOL
     Indication: Mental disorder
  39. DULOXETINE [Concomitant]
     Active Substance: DULOXETINE
     Indication: Product used for unknown indication
     Route: 065
  40. -lipoic acid [Concomitant]
     Indication: Product used for unknown indication
     Route: 042
  41. Telmisartan/indapamide [Concomitant]
     Indication: Product used for unknown indication
  42. KETOPROFEN [Suspect]
     Active Substance: KETOPROFEN
     Indication: Oropharyngeal pain
     Route: 042
  43. METAMIZOLE [Suspect]
     Active Substance: METAMIZOLE

REACTIONS (12)
  - Pain [Recovering/Resolving]
  - Condition aggravated [Recovering/Resolving]
  - Throat irritation [Not Recovered/Not Resolved]
  - Drug interaction [Unknown]
  - Oropharyngeal pain [Not Recovered/Not Resolved]
  - Nausea [Unknown]
  - Increased appetite [Unknown]
  - Emotional distress [Unknown]
  - Food interaction [Recovering/Resolving]
  - Dysphagia [Not Recovered/Not Resolved]
  - Weight increased [Unknown]
  - Abdominal pain [Unknown]
